FAERS Safety Report 9263010 (Version 1)
Quarter: 2013Q1

REPORT INFORMATION
  Report Type: Spontaneous
  Country: US (occurrence: None)
  Receive Date: 20121212
  Receipt Date: 20121212
  Transmission Date: 20140127
  Serious: No
  Sender: FDA-Public Use
  Company Number: 1209USA000714

PATIENT
  Age: 43 Year
  Sex: Male

DRUGS (3)
  1. PEGINTRON [Suspect]
     Indication: HEPATITIS C
     Dates: start: 20120824
  2. REBETOL [Suspect]
     Dates: start: 20120824
  3. VICTRELIS [Suspect]
     Indication: HEPATITIS C
     Dates: start: 20120921

REACTIONS (5)
  - Tongue disorder [None]
  - Pyrexia [None]
  - Fatigue [None]
  - Influenza like illness [None]
  - Dysgeusia [None]
